FAERS Safety Report 20745892 (Version 1)
Quarter: 2022Q2

REPORT INFORMATION
  Report Type: Spontaneous
  Country: US (occurrence: None)
  Receive Date: 20220424
  Receipt Date: 20220424
  Transmission Date: 20220720
  Serious: No
  Sender: FDA-Public Use
  Company Number: None

PATIENT
  Age: 46 Year
  Sex: Female
  Weight: 73.8 kg

DRUGS (1)
  1. WEGOVY [Suspect]
     Active Substance: SEMAGLUTIDE
     Indication: Obesity
     Dates: start: 20220318

REACTIONS (7)
  - Nausea [None]
  - Headache [None]
  - Dizziness [None]
  - Abdominal pain upper [None]
  - Paraesthesia [None]
  - Feeling hot [None]
  - Feeling cold [None]

NARRATIVE: CASE EVENT DATE: 20220424
